FAERS Safety Report 6306940-0 (Version None)
Quarter: 2009Q3

REPORT INFORMATION
  Report Type: 
  Country: None (occurrence: None)
  Receive Date: 20090810
  Receipt Date: 20090731
  Transmission Date: 20100115
  Serious: Yes (Hospitalization, Disabling)
  Sender: FDA-Public Use
  Company Number: WAES 0908FRA00001

PATIENT
  Age: 27 Year
  Sex: Male

DRUGS (4)
  1. CAP VORINOSTAT [Suspect]
     Indication: MYCOSIS FUNGOIDES
     Dosage: 400 MG/DAILY PO
     Route: 048
     Dates: start: 20071101
  2. TAB FUROSEMIDE [Suspect]
     Dosage: 40 MG/DAILY PO
     Route: 048
  3. RAMIPRIL [Suspect]
     Dosage: 5 MG/DAILY PO
     Route: 048
  4. BISOPROLOL FUMARATE [Suspect]
     Dosage: 3.75 MG/DAILY PO
     Route: 048

REACTIONS (2)
  - EXTREMITY NECROSIS [None]
  - SKIN ULCER [None]
